FAERS Safety Report 4846721-8 (Version None)
Quarter: 2005Q4

REPORT INFORMATION
  Report Type: 
  Country: None (occurrence: None)
  Receive Date: 20051206
  Receipt Date: 20051005
  Transmission Date: 20060501
  Serious: Yes (Disabling, Other)
  Sender: FDA-Public Use
  Company Number: US-MERCK-0510USA04237

PATIENT
  Age: 58 Year
  Sex: Female

DRUGS (11)
  1. VIOXX [Suspect]
     Route: 048
     Dates: start: 20000101, end: 20040101
  2. PRINIVIL [Concomitant]
     Route: 048
  3. ALBUTEROL [Concomitant]
     Route: 065
  4. ADVAIR DISKUS 100/50 [Concomitant]
     Route: 065
  5. ASPIRIN [Concomitant]
     Route: 065
  6. NEURONTIN [Concomitant]
     Route: 065
  7. PLAVIX [Concomitant]
     Route: 065
  8. PERCOCET [Concomitant]
     Route: 065
  9. TEMAZEPAM [Concomitant]
     Route: 065
  10. CARBAMAZEPINE [Concomitant]
     Route: 065
  11. SIMVASTATIN [Concomitant]
     Route: 065

REACTIONS (11)
  - ARTIFICIAL MENOPAUSE [None]
  - CAROTID ARTERY OCCLUSION [None]
  - CEREBRAL INFARCTION [None]
  - CHRONIC OBSTRUCTIVE PULMONARY DISEASE [None]
  - COMPLEX REGIONAL PAIN SYNDROME [None]
  - HYPERLIPIDAEMIA [None]
  - HYPERTENSION [None]
  - INTERVERTEBRAL DISC DEGENERATION [None]
  - ISCHAEMIC STROKE [None]
  - OSTEOARTHRITIS [None]
  - UTERINE DISORDER [None]
